FAERS Safety Report 7290872-8 (Version None)
Quarter: 2011Q1

REPORT INFORMATION
  Report Type: 
  Country: None (occurrence: None)
  Receive Date: 20110201
  Receipt Date: 20110121
  Transmission Date: 20110831
  Serious: Yes (Hospitalization)
  Sender: FDA-Public Use
  Company Number: 2011PV000008

PATIENT
  Age: 48 Year
  Sex: Female

DRUGS (3)
  1. BACITRACIN W/NEOMYCIN [Concomitant]
  2. POLYMIXIN [Concomitant]
  3. DEPOCYT [Suspect]
     Indication: METASTASES TO MENINGES
     Dosage: INTH

REACTIONS (2)
  - NEUROGENIC BLADDER [None]
  - PROCTOPARALYSIS [None]
